FAERS Safety Report 23966646 (Version 7)
Quarter: 2025Q1

REPORT INFORMATION
  Report Type: Report from Study
  Country: UY (occurrence: UY)
  Receive Date: 20240612
  Receipt Date: 20250326
  Transmission Date: 20250408
  Serious: Yes (Hospitalization)
  Sender: JOHNSON AND JOHNSON
  Company Number: UY-JNJFOC-20240490395

PATIENT
  Age: 8 Year
  Sex: Male
  Weight: 36 kg

DRUGS (5)
  1. REMICADE [Suspect]
     Active Substance: INFLIXIMAB
     Indication: Colitis ulcerative
     Route: 041
     Dates: start: 20210101, end: 20241226
  2. REMICADE [Suspect]
     Active Substance: INFLIXIMAB
     Route: 041
  3. CORTICOSTEROID NOS [Concomitant]
     Active Substance: CORTICOSTEROID NOS
  4. CALCIUM [Concomitant]
     Active Substance: CALCIUM
  5. OMEPRAZOLE [Concomitant]
     Active Substance: OMEPRAZOLE

REACTIONS (5)
  - Cough [Unknown]
  - Colitis ulcerative [Recovering/Resolving]
  - Infection [Recovering/Resolving]
  - Drug ineffective [Unknown]
  - Off label use [Unknown]

NARRATIVE: CASE EVENT DATE: 20240408
